FAERS Safety Report 11032109 (Version 4)
Quarter: 2016Q1

REPORT INFORMATION
  Report Type: Report from Study
  Country: JP (occurrence: JP)
  Receive Date: 20150415
  Receipt Date: 20160203
  Transmission Date: 20160525
  Serious: Yes (Other)
  Sender: FDA-Public Use
  Company Number: JP-ASTELLAS-2015JP006628

PATIENT
  Age: 55 Year
  Sex: Female
  Weight: 48 kg

DRUGS (18)
  1. MIRABEGRON [Suspect]
     Active Substance: MIRABEGRON
     Route: 048
     Dates: start: 20150825
  2. URITOS [Suspect]
     Active Substance: IMIDAFENACIN
     Indication: HYPERTONIC BLADDER
     Dosage: 0.2 MG, TWICE DAILY
     Route: 048
     Dates: start: 20150224, end: 20150823
  3. URITOS [Suspect]
     Active Substance: IMIDAFENACIN
     Dosage: 0.2 MG, TWICE DAILY
     Route: 048
     Dates: start: 20150825
  4. LOXOPROFEN [Concomitant]
     Active Substance: LOXOPROFEN
     Indication: TENDON SHEATH INCISION
     Route: 048
     Dates: start: 20150323, end: 20150325
  5. ACDEAM                             /00274101/ [Concomitant]
     Indication: NASOPHARYNGITIS
     Route: 048
     Dates: start: 20150407, end: 20150411
  6. LOXONIN [Concomitant]
     Active Substance: LOXOPROFEN SODIUM
     Indication: NASOPHARYNGITIS
     Route: 048
     Dates: start: 20150407, end: 20150411
  7. CEFCAPENE PIVOXIL HYDROCHLORIDE [Concomitant]
     Active Substance: CEFCAPENE PIVOXIL HYDROCHLORIDE
     Indication: TENDON SHEATH INCISION
     Route: 048
     Dates: start: 20150323, end: 20150327
  8. FLOMOX                             /01418603/ [Concomitant]
     Indication: NASOPHARYNGITIS
     Route: 048
     Dates: start: 20150407, end: 20150411
  9. MUCODYNE [Concomitant]
     Active Substance: CARBOCYSTEINE
     Indication: NASOPHARYNGITIS
     Route: 048
     Dates: start: 20150413
  10. MIRABEGRON [Suspect]
     Active Substance: MIRABEGRON
     Indication: HYPERTONIC BLADDER
     Route: 048
     Dates: start: 20150206, end: 20150823
  11. BETANIS [Suspect]
     Active Substance: MIRABEGRON
     Indication: HYPERTONIC BLADDER
     Route: 048
     Dates: start: 20140418, end: 20150204
  12. NORSPAN [Suspect]
     Active Substance: BUPRENORPHINE
     Indication: NECK PAIN
     Dosage: 5 MG/4DAYS
     Route: 061
     Dates: start: 20150821, end: 20150824
  13. LOXONIN [Concomitant]
     Active Substance: LOXOPROFEN SODIUM
     Indication: TENOSYNOVITIS
     Route: 048
     Dates: start: 20150417, end: 20150615
  14. KETOPROFEN. [Concomitant]
     Active Substance: KETOPROFEN
     Indication: ANALGESIC THERAPY
     Dosage: UNK UNK, UNKNOWN FREQ.
     Route: 061
     Dates: start: 20150105, end: 20150220
  15. URITOS [Suspect]
     Active Substance: IMIDAFENACIN
     Dosage: 0.2 MG, ONCE DAILY
     Route: 048
     Dates: start: 20150824, end: 20150824
  16. REBAMIPIDE [Concomitant]
     Active Substance: REBAMIPIDE
     Indication: TENDON SHEATH INCISION
     Route: 048
     Dates: start: 20150323, end: 20150325
  17. KETOPROFEN. [Concomitant]
     Active Substance: KETOPROFEN
     Indication: TENOSYNOVITIS
     Route: 061
     Dates: start: 20150417, end: 20150615
  18. REBAMIPIDE [Concomitant]
     Active Substance: REBAMIPIDE
     Indication: TENOSYNOVITIS
     Route: 048
     Dates: start: 20150417, end: 20150615

REACTIONS (6)
  - Neck pain [Recovered/Resolved]
  - Vomiting [Recovered/Resolved]
  - Dry mouth [Not Recovered/Not Resolved]
  - Tendon sheath incision [Recovered/Resolved]
  - Nasopharyngitis [Recovered/Resolved]
  - Tenosynovitis [Recovered/Resolved]

NARRATIVE: CASE EVENT DATE: 20140403
